FAERS Safety Report 4684991-X (Version None)
Quarter: 2005Q2

REPORT INFORMATION
  Report Type: 
  Country: None (occurrence: None)
  Receive Date: 20050608
  Receipt Date: 20050524
  Transmission Date: 20051028
  Serious: Yes (Hospitalization)
  Sender: FDA-Public Use
  Company Number: BE-JNJFOC-20050506392

PATIENT
  Age: 59 Year
  Sex: Female

DRUGS (3)
  1. INFLIXIMAB [Suspect]
     Indication: RHEUMATOID ARTHRITIS
     Dosage: WEEKS 0,2,6
     Route: 042
  2. REDOMEX [Concomitant]
     Indication: MIGRAINE
     Route: 065
  3. DOLZAM [Concomitant]
     Indication: PAIN
     Route: 065

REACTIONS (2)
  - HERPES ZOSTER [None]
  - PNEUMONIA KLEBSIELLA [None]
